FAERS Safety Report 5834705-2 (Version None)
Quarter: 2008Q3

REPORT INFORMATION
  Report Type: 
  Country: None (occurrence: None)
  Receive Date: 20080801
  Receipt Date: 20080721
  Transmission Date: 20090109
  Serious: Yes (Hospitalization, Other)
  Sender: FDA-Public Use
  Company Number: 2008BI012897

PATIENT
  Age: 41 Year
  Sex: Female

DRUGS (1)
  1. AVONEX [Suspect]
     Indication: MULTIPLE SCLEROSIS
     Dosage: 30 UG; QW; IM
     Route: 030
     Dates: start: 20060101

REACTIONS (11)
  - BLOOD GLUCOSE DECREASED [None]
  - BLOOD POTASSIUM DECREASED [None]
  - CEREBROVASCULAR ACCIDENT [None]
  - DEPRESSION [None]
  - FOAMING AT MOUTH [None]
  - GRAND MAL CONVULSION [None]
  - HEADACHE [None]
  - LARGE INTESTINAL ULCER HAEMORRHAGE [None]
  - MUSCLE TWITCHING [None]
  - OVARIAN CANCER [None]
  - SYNCOPE VASOVAGAL [None]
